FAERS Safety Report 7720261-0 (Version None)
Quarter: 2011Q3

REPORT INFORMATION
  Report Type: 
  Country: None (occurrence: None)
  Receive Date: 20110831
  Receipt Date: 20110825
  Transmission Date: 20111222
  Serious: Yes (Death)
  Sender: FDA-Public Use
  Company Number: JP-PFIZER INC-2011201833

PATIENT
  Age: 57 Year
  Sex: Male

DRUGS (8)
  1. ADALAT [Concomitant]
     Dosage: UNK
     Route: 047
     Dates: end: 20110218
  2. AMARYL [Concomitant]
     Dosage: UNK
     Route: 048
     Dates: end: 20110218
  3. ALLOPURINOL [Concomitant]
     Dosage: UNK
     Route: 048
     Dates: end: 20110218
  4. ATORVASTATIN CALCIUM [Suspect]
     Indication: HYPERCHOLESTEROLAEMIA
     Dosage: 10 MG, UID/QD
     Route: 048
     Dates: start: 20101124, end: 20110218
  5. BASEN [Concomitant]
     Dosage: UNK
     Route: 048
     Dates: end: 20110218
  6. ALDOMET [Concomitant]
     Dosage: UNK
     Route: 048
     Dates: end: 20110218
  7. TANATRIL ^ALGOL^ [Concomitant]
     Dosage: UNK
     Route: 048
     Dates: end: 20110218
  8. ALOGLIPTIN BENZOATE [Concomitant]
     Dosage: UNK
     Route: 048
     Dates: start: 20100930, end: 20110218

REACTIONS (1)
  - DEATH [None]
